FAERS Safety Report 20690843 (Version 1)
Quarter: 2022Q2

REPORT INFORMATION
  Report Type: Other
  Country: None (occurrence: US)
  Receive Date: 20220408
  Receipt Date: 20220408
  Transmission Date: 20220721
  Serious: Yes (Death)
  Sender: FDA-Public Use
  Company Number: US-ALSI-2022000073

PATIENT
  Age: 69 Year
  Sex: Male

DRUGS (1)
  1. OXYGEN [Suspect]
     Active Substance: OXYGEN
     Indication: Chronic obstructive pulmonary disease
     Route: 055

REACTIONS (1)
  - Accident [Fatal]

NARRATIVE: CASE EVENT DATE: 20220303
